FAERS Safety Report 8964221 (Version 1)
Quarter: 2012Q4

REPORT INFORMATION
  Report Type: 
  Country: US (occurrence: US)
  Receive Date: 20121214
  Receipt Date: 20121214
  Transmission Date: 20130627
  Serious: Yes (Hospitalization)
  Sender: FDA-Public Use
  Company Number: US-BAYER-2012-130360

PATIENT
  Age: 41 Year
  Sex: Female

DRUGS (11)
  1. YASMIN [Suspect]
  2. OCELLA [Suspect]
  3. PREDNISONE [Concomitant]
     Dosage: 40 mg, daily
     Route: 048
     Dates: start: 20090524
  4. KCL [Concomitant]
     Dosage: 20 mEq, BID
     Route: 048
     Dates: start: 20090524
  5. PROMETHAZINE [Concomitant]
     Dosage: 25 mg, UNK
     Route: 048
     Dates: start: 20090625
  6. AZATHIOPRINE [Concomitant]
     Dosage: 50 mg, UNK
     Route: 048
     Dates: start: 20090625
  7. FLAGYL [Concomitant]
  8. FLEXERIL [Concomitant]
  9. VICODIN [Concomitant]
  10. VICODIN [Concomitant]
  11. AMBIEN [Concomitant]

REACTIONS (1)
  - Deep vein thrombosis [Recovering/Resolving]
